FAERS Safety Report 7539493-X (Version None)
Quarter: 2011Q2

REPORT INFORMATION
  Report Type: 
  Country: None (occurrence: None)
  Receive Date: 20110609
  Receipt Date: 20110609
  Transmission Date: 20111010
  Serious: Yes (Hospitalization)
  Sender: FDA-Public Use
  Company Number: None

PATIENT
  Sex: Female
  Weight: 83.7794 kg

DRUGS (16)
  1. PROMETHAZINE [Concomitant]
  2. PEPCID [Concomitant]
  3. ONE A DAY VITAMIN [Concomitant]
  4. LEVOXYL [Concomitant]
  5. CISPLATIN [Suspect]
     Indication: BREAST CANCER
     Dosage: 25MG/M2 IV
     Route: 042
     Dates: start: 20110525, end: 20110601
  6. PACLITAXEL [Suspect]
     Indication: BREAST CANCER
     Dosage: 80MG/M2 IV
     Route: 042
     Dates: start: 20110526, end: 20110605
  7. FUROSEMIDE [Concomitant]
  8. RAD001 [Suspect]
     Dosage: 5MG PO DAILY
     Route: 048
  9. BAYER ASA [Concomitant]
  10. ONDANSERTRON HYDROCHLORIDE [Concomitant]
  11. POTASSIUM CHLORIDE ER [Concomitant]
  12. DARVOCET [Concomitant]
  13. DARVOCET [Concomitant]
  14. AMBIEN [Concomitant]
  15. ANZEMET [Concomitant]
  16. ATIVAN [Concomitant]

REACTIONS (3)
  - PLATELET COUNT DECREASED [None]
  - WHITE BLOOD CELL COUNT DECREASED [None]
  - NEUTROPHIL COUNT DECREASED [None]
